FAERS Safety Report 8054117-3 (Version None)
Quarter: 2012Q1

REPORT INFORMATION
  Report Type: 
  Country: None (occurrence: None)
  Receive Date: 20120118
  Receipt Date: 20120113
  Transmission Date: 20120608
  Serious: Yes (Hospitalization, Other)
  Sender: FDA-Public Use
  Company Number: JP-B.I. PHARMACEUTICALS,INC./RIDGEFIELD-2011-BP-28149NB

PATIENT
  Age: 69 Year
  Sex: Male

DRUGS (7)
  1. SENNOSIDE [Concomitant]
     Route: 065
  2. ALLOPURINOL [Concomitant]
     Route: 065
  3. JUVELA [Concomitant]
     Route: 065
  4. MAGNESIUM SULFATE [Concomitant]
     Route: 065
  5. PRADAXA [Suspect]
     Indication: ATRIAL FIBRILLATION
     Dosage: 300 MG
     Route: 048
  6. ADENOSINE [Concomitant]
     Route: 065
  7. VALSARTAN  AND HYDROCHLOROTHIAZIDE [Concomitant]
     Route: 065

REACTIONS (3)
  - ANAEMIA [None]
  - MELAENA [None]
  - DIZZINESS [None]
